FAERS Safety Report 10615799 (Version 2)
Quarter: 2015Q2

REPORT INFORMATION
  Report Type: Spontaneous
  Country: HR (occurrence: HR)
  Receive Date: 20141201
  Receipt Date: 20150421
  Transmission Date: 20150821
  Serious: Yes (Other)
  Sender: FDA-Public Use
  Company Number: HR-JNJFOC-20141114045

PATIENT
  Age: 21 Year
  Sex: Male

DRUGS (7)
  1. DIAZEPAM. [Concomitant]
     Active Substance: DIAZEPAM
     Route: 065
  2. RISPERDAL CONSTA [Suspect]
     Active Substance: RISPERIDONE
     Indication: SCHIZOPHRENIA
     Route: 030
     Dates: start: 201205, end: 201309
  3. DIAZEPAM. [Concomitant]
     Active Substance: DIAZEPAM
     Route: 065
  4. PROMAZINE [Concomitant]
     Active Substance: PROMAZINE
     Route: 065
  5. ESCITALOPRAM [Concomitant]
     Active Substance: ESCITALOPRAM OXALATE
     Route: 065
  6. PROMAZINE [Concomitant]
     Active Substance: PROMAZINE
     Route: 065
  7. RISPERIDONE. [Concomitant]
     Active Substance: RISPERIDONE
     Route: 048

REACTIONS (6)
  - Social avoidant behaviour [Recovered/Resolved]
  - Hallucination [Recovering/Resolving]
  - Depression [Recovered/Resolved]
  - Alcohol abuse [Recovered/Resolved]
  - Treatment noncompliance [Unknown]
  - Tension [Recovered/Resolved]

NARRATIVE: CASE EVENT DATE: 201211
